FAERS Safety Report 8523108-8 (Version None)
Quarter: 2012Q3

REPORT INFORMATION
  Report Type: 
  Country: None (occurrence: None)
  Receive Date: 20120720
  Receipt Date: 20120716
  Transmission Date: 20120928
  Serious: No
  Sender: FDA-Public Use
  Company Number: US-PFIZER INC-2012172058

PATIENT
  Sex: Female

DRUGS (5)
  1. COUMADIN [Suspect]
     Dosage: UNK
  2. GABAPENTIN [Suspect]
     Dosage: UNK
  3. LYRICA [Suspect]
     Dosage: 150 MG, 2X/DAY
  4. LYRICA [Suspect]
     Indication: DIABETIC NEUROPATHY
     Dosage: 100 MG, 2X/DAY
  5. GLIPIZIDE [Suspect]
     Dosage: UNK

REACTIONS (1)
  - INSOMNIA [None]
